FAERS Safety Report 17877715 (Version 1)
Quarter: 2020Q2

REPORT INFORMATION
  Report Type: Spontaneous
  Country: US (occurrence: US)
  Receive Date: 20200609
  Receipt Date: 20200609
  Transmission Date: 20200714
  Serious: No
  Sender: FDA-Public Use
  Company Number: US-AMGEN-USASP2020090571

PATIENT
  Sex: Female

DRUGS (1)
  1. ARANESP [Suspect]
     Active Substance: DARBEPOETIN ALFA
     Indication: LEUKAEMIA
     Dosage: 200 MICROGRAM, Q2WK
     Route: 065

REACTIONS (2)
  - Off label use [Unknown]
  - Hypertension [Unknown]
